FAERS Safety Report 7633558-X (Version None)
Quarter: 2011Q3

REPORT INFORMATION
  Report Type: 
  Country: None (occurrence: None)
  Receive Date: 20110725
  Receipt Date: 20090929
  Transmission Date: 20111222
  Serious: Yes (Hospitalization)
  Sender: FDA-Public Use
  Company Number: US-GLAXOSMITHKLINE-A0809837A

PATIENT
  Sex: Male
  Weight: 204.5 kg

DRUGS (9)
  1. AVANDIA [Suspect]
     Indication: TYPE 2 DIABETES MELLITUS
     Dosage: 8MG PER DAY
     Route: 048
     Dates: start: 20000101, end: 20070901
  2. GLIPIZIDE [Concomitant]
  3. ALLOPURINOL [Concomitant]
  4. SIMVASTATIN [Concomitant]
  5. ATROVENT [Concomitant]
  6. OMEPRAZOLE [Concomitant]
  7. METOPROLOL TARTRATE [Concomitant]
  8. THEOPHYLLINE [Concomitant]
  9. ALBUTEROL SULFATE AUTOHALER [Concomitant]

REACTIONS (2)
  - CORONARY ARTERY DISEASE [None]
  - CARDIAC FAILURE CONGESTIVE [None]
